FAERS Safety Report 19361883 (Version 2)
Quarter: 2021Q2

REPORT INFORMATION
  Report Type: Report from Study
  Country: CA (occurrence: CA)
  Receive Date: 20210603
  Receipt Date: 20210610
  Transmission Date: 20210717
  Serious: Yes (Other)
  Sender: FDA-Public Use
  Company Number: CA-BEH-2021131946

PATIENT
  Age: 74 Year
  Sex: Male
  Weight: 54.42 kg

DRUGS (3)
  1. HIZENTRA [Suspect]
     Active Substance: HUMAN IMMUNOGLOBULIN G
     Dosage: UNK
     Route: 058
  2. HIZENTRA [Suspect]
     Active Substance: HUMAN IMMUNOGLOBULIN G
     Dosage: UNK
     Route: 058
  3. HIZENTRA [Suspect]
     Active Substance: HUMAN IMMUNOGLOBULIN G
     Indication: SECONDARY IMMUNODEFICIENCY
     Dosage: 5 GRAM, QW
     Route: 058
     Dates: start: 20210327

REACTIONS (3)
  - Pneumonia [Unknown]
  - Urinary tract infection [Unknown]
  - Fatigue [Unknown]

NARRATIVE: CASE EVENT DATE: 202105
